FAERS Safety Report 6681167-1 (Version None)
Quarter: 2010Q2

REPORT INFORMATION
  Report Type: 
  Country: None (occurrence: None)
  Receive Date: 20100414
  Receipt Date: 20100408
  Transmission Date: 20101027
  Serious: Yes (Other)
  Sender: FDA-Public Use
  Company Number: CN-BAYER-201020491GPV

PATIENT
  Age: 62 Year
  Sex: Male

DRUGS (5)
  1. ULTRAVIST 150 [Suspect]
     Indication: PERCUTANEOUS CORONARY INTERVENTION
     Route: 042
     Dates: start: 20100101, end: 20100101
  2. ASPIRIN [Concomitant]
  3. PLAVIX [Concomitant]
  4. IMDUR [Concomitant]
  5. BETALOC [Concomitant]

REACTIONS (6)
  - BLOOD PRESSURE DECREASED [None]
  - CHEST DISCOMFORT [None]
  - CHEST PAIN [None]
  - DEPRESSED LEVEL OF CONSCIOUSNESS [None]
  - HEART RATE DECREASED [None]
  - RASH PRURITIC [None]
